FAERS Safety Report 13346461 (Version 1)
Quarter: 2017Q1

REPORT INFORMATION
  Report Type: Spontaneous
  Country: US (occurrence: US)
  Receive Date: 20170317
  Receipt Date: 20170317
  Transmission Date: 20170428
  Serious: Yes (Hospitalization, Other)
  Sender: FDA-Public Use
  Company Number: US-ALEXION-A201701859

PATIENT
  Sex: Male
  Weight: 77 kg

DRUGS (2)
  1. SOLIRIS [Suspect]
     Active Substance: ECULIZUMAB
     Indication: HAEMOLYTIC URAEMIC SYNDROME
     Dosage: 900 MG, QW
     Route: 042
     Dates: start: 20170218
  2. SOLIRIS [Suspect]
     Active Substance: ECULIZUMAB
     Dosage: UNK
     Route: 042
     Dates: end: 20170306

REACTIONS (5)
  - Plasma cell myeloma [Unknown]
  - Haemoglobin abnormal [Unknown]
  - Proteinuria [Unknown]
  - Blood creatinine abnormal [Unknown]
  - Haematocrit abnormal [Unknown]
